FAERS Safety Report 5711164-1 (Version None)
Quarter: 2008Q2

REPORT INFORMATION
  Report Type: 
  Country: None (occurrence: None)
  Receive Date: 20080421
  Receipt Date: 20080414
  Transmission Date: 20081010
  Serious: Yes (Life-Threatening)
  Sender: FDA-Public Use
  Company Number: JP-AVENTIS-200612631JP

PATIENT
  Age: 5 Day
  Sex: Male
  Weight: 12.6 kg

DRUGS (9)
  1. CLAFORAN [Suspect]
     Route: 041
     Dates: start: 20051015, end: 20051020
  2. CLAFORAN [Suspect]
     Route: 041
     Dates: start: 20051021, end: 20051024
  3. CLAFORAN [Suspect]
     Indication: MENINGITIS
     Route: 041
     Dates: start: 20051015, end: 20051020
  4. CLAFORAN [Suspect]
     Route: 041
     Dates: start: 20051021, end: 20051024
  5. TARGOCID [Suspect]
     Indication: MENINGITIS
     Dosage: DOSE QUANTITY: 68
     Route: 041
     Dates: start: 20051029, end: 20051029
  6. VICCILLIN [Concomitant]
     Dosage: DOSE QUANTITY: 200
     Route: 041
     Dates: start: 20051014, end: 20051020
  7. CARBENIN [Concomitant]
     Indication: MENINGITIS
     Dosage: DOSE QUANTITY: 130
     Route: 041
     Dates: start: 20051020, end: 20051107
  8. VANCOMYCIN [Concomitant]
     Indication: MENINGITIS
     Dosage: DOSE QUANTITY: 60
     Route: 041
     Dates: start: 20051025, end: 20051029
  9. IMMUNE GLOBULIN INTRAVENOUS (HUMAN) [Concomitant]
     Indication: MENINGITIS
     Route: 041
     Dates: start: 20051021, end: 20051021

REACTIONS (1)
  - MENINGITIS [None]
